FAERS Safety Report 9314827 (Version 2)
Quarter: 2013Q2

REPORT INFORMATION
  Report Type: Spontaneous
  Country: JP (occurrence: JP)
  Receive Date: 20130529
  Receipt Date: 20130627
  Transmission Date: 20140414
  Serious: Yes (Other)
  Sender: FDA-Public Use
  Company Number: JP-JHP PHARMACEUTICALS, LLC-JHP201300313

PATIENT
  Age: 78 Year
  Sex: Male

DRUGS (1)
  1. DANTRIUM [Suspect]
     Indication: PARALYSIS
     Dosage: 25 MG, BID
     Route: 048

REACTIONS (2)
  - Off label use [Unknown]
  - Platelet count decreased [Unknown]
